FAERS Safety Report 15467908 (Version 1)
Quarter: 2018Q4

REPORT INFORMATION
  Report Type: Spontaneous
  Country: US (occurrence: US)
  Receive Date: 20181005
  Receipt Date: 20181005
  Transmission Date: 20190204
  Serious: Yes (Life-Threatening, Hospitalization)
  Sender: FDA-Public Use
  Company Number: US-STRIDES ARCOLAB LIMITED-2018SP008587

PATIENT
  Age: 60 Year
  Sex: Male

DRUGS (2)
  1. TACROLIMUS. [Suspect]
     Active Substance: TACROLIMUS
     Indication: STEM CELL TRANSPLANT
     Dosage: 15 MG, BID
     Route: 042
  2. LEVETIRACETAM. [Concomitant]
     Active Substance: LEVETIRACETAM
     Indication: PRODUCT USED FOR UNKNOWN INDICATION
     Dosage: 500 MG, BID
     Route: 065

REACTIONS (9)
  - Diarrhoea [Unknown]
  - Abdominal pain [Unknown]
  - Pseudomonas infection [Unknown]
  - Septic shock [Unknown]
  - Respiratory failure [Recovered/Resolved]
  - Accidental overdose [Recovered/Resolved]
  - Hypotension [Unknown]
  - Pyrexia [Unknown]
  - Toxicity to various agents [Recovered/Resolved]
